FAERS Safety Report 8614381-6 (Version None)
Quarter: 2012Q3

REPORT INFORMATION
  Report Type: 
  Country: None (occurrence: None)
  Receive Date: 20120823
  Receipt Date: 20120816
  Transmission Date: 20120928
  Serious: Yes (Hospitalization, Other)
  Sender: FDA-Public Use
  Company Number: GB-SANOFI-AVENTIS-2012SA059499

PATIENT
  Age: 56 Year
  Sex: Female
  Weight: 86.4 kg

DRUGS (9)
  1. ACETAMINOPHEN [Concomitant]
     Dates: start: 20120508
  2. FILGRASTIM [Concomitant]
     Dates: start: 20120615, end: 20120620
  3. EPIRUBICIN HYDROCHLORIDE [Suspect]
     Route: 065
     Dates: start: 20120615
  4. FLUOROURACIL [Suspect]
     Route: 065
     Dates: start: 20120615
  5. CYCLOPHOSPHAMIDE [Suspect]
     Route: 065
     Dates: start: 20120615
  6. DEXAMETHASONE [Suspect]
     Route: 065
     Dates: start: 20120615, end: 20120615
  7. DOCETAXEL [Suspect]
     Route: 065
     Dates: start: 20120615
  8. ONDANSETRON [Suspect]
     Route: 065
     Dates: start: 20120615, end: 20120615
  9. IBUPROFEN [Concomitant]
     Dates: start: 20120606

REACTIONS (1)
  - GASTROOESOPHAGEAL REFLUX DISEASE [None]
